FAERS Safety Report 7406716-7 (Version None)
Quarter: 2011Q2

REPORT INFORMATION
  Report Type: 
  Country: None (occurrence: None)
  Receive Date: 20110406
  Receipt Date: 20110406
  Transmission Date: 20111010
  Serious: Yes (Hospitalization)
  Sender: FDA-Public Use
  Company Number: None

PATIENT
  Sex: Male
  Weight: 86.9 kg

DRUGS (4)
  1. LEUPROLIDE ACETATE [Suspect]
     Dosage: 45 MG
  2. BENZODIAZAPINE [Concomitant]
  3. TAXOTERE [Suspect]
     Dosage: 154 MG
  4. NARCOTICS [Concomitant]

REACTIONS (7)
  - CONFUSIONAL STATE [None]
  - OSTEOMYELITIS [None]
  - INTERVERTEBRAL DISCITIS [None]
  - EXTRADURAL ABSCESS [None]
  - HYDRONEPHROSIS [None]
  - CALCULUS BLADDER [None]
  - SPINAL COLUMN STENOSIS [None]
